FAERS Safety Report 8709446 (Version 2)
Quarter: 2013Q2

REPORT INFORMATION
  Report Type: Report from Study
  Country: BR (occurrence: BR)
  Receive Date: 20120806
  Receipt Date: 20130529
  Transmission Date: 20140414
  Serious: Yes (Other)
  Sender: FDA-Public Use
  Company Number: BR-BAYER-2012-076244

PATIENT
  Age: 59 Year
  Sex: Male
  Weight: 74 kg

DRUGS (11)
  1. NEXAVAR [Suspect]
     Indication: METASTASES TO SPINE
     Dosage: 1 DF, QD
     Route: 048
     Dates: start: 201205, end: 20120617
  2. NEXAVAR [Suspect]
     Indication: METASTASES TO SPINE
     Dosage: 1 TABLET TWICE PER DAY (400 MG PER DAY)
     Route: 048
     Dates: start: 201207
  3. DIMORF [Concomitant]
     Indication: BACK PAIN
     Dosage: 1 DF, QID
     Route: 048
     Dates: start: 201203
  4. DIPYRONE [Concomitant]
     Indication: BACK PAIN
     Dosage: 40 GTT, QID
     Route: 048
     Dates: start: 201203
  5. AMITRIPTYLINE HCL W/CHLORDIAZEPOXIDE HCL [Concomitant]
     Indication: NERVOUS SYSTEM DISORDER
     Dosage: 3 DF, QD
     Route: 048
     Dates: start: 201203
  6. OMEPRAZOLE [Concomitant]
     Indication: LIVER DISORDER
     Dosage: 1 DF, QD
     Route: 048
     Dates: start: 201001
  7. ATENOLOL [Concomitant]
     Indication: LIVER DISORDER
     Dosage: 1 DF, QD
     Route: 048
     Dates: start: 201001
  8. PROGRAF [Concomitant]
     Indication: LIVER DISORDER
     Dosage: 1 DF, BID
     Route: 048
     Dates: start: 201001
  9. VEROLIME [Concomitant]
     Indication: LIVER DISORDER
     Dosage: 1 DF, BID
     Route: 048
     Dates: start: 201001
  10. CHEMOTHERAPEUTICS NOS [Concomitant]
     Dosage: UNK
     Dates: start: 201206
  11. RADIOTHERAPY [Concomitant]
     Dosage: UNK
     Dates: start: 201205

REACTIONS (10)
  - Fistula [Recovered/Resolved]
  - Fistula discharge [Recovered/Resolved]
  - Inflammation [Recovered/Resolved]
  - Skin fissures [Recovered/Resolved]
  - Fistula [Recovered/Resolved]
  - Fistula discharge [Recovered/Resolved]
  - Swelling [Recovered/Resolved]
  - Groin infection [Recovered/Resolved]
  - Erythema [Recovered/Resolved]
  - Generalised oedema [Recovered/Resolved]
